FAERS Safety Report 18228250 (Version 1)
Quarter: 2020Q3

REPORT INFORMATION
  Report Type: Spontaneous
  Country: US (occurrence: US)
  Receive Date: 20200903
  Receipt Date: 20200903
  Transmission Date: 20201103
  Serious: Yes (Other)
  Sender: FDA-Public Use
  Company Number: None

PATIENT
  Age: 57 Year
  Sex: Female
  Weight: 57.5 kg

DRUGS (8)
  1. COBIMETINIB. [Suspect]
     Active Substance: COBIMETINIB
  2. TRAMADOL. [Suspect]
     Active Substance: TRAMADOL
  3. TAFINLAR [Suspect]
     Active Substance: DABRAFENIB MESYLATE
     Indication: MALIGNANT MELANOMA
     Route: 048
     Dates: start: 20200808, end: 20200817
  4. MEKINIST [Suspect]
     Active Substance: TRAMETINIB DIMETHYL SULFOXIDE
     Indication: MALIGNANT MELANOMA
     Route: 048
     Dates: start: 20200808, end: 20200817
  5. ZOFRAN [Concomitant]
     Active Substance: ONDANSETRON HYDROCHLORIDE
  6. CITALOPRAM [Concomitant]
     Active Substance: CITALOPRAM HYDROBROMIDE
  7. LEVOTHYROXINE. [Suspect]
     Active Substance: LEVOTHYROXINE
  8. VEMURAFENIB. [Suspect]
     Active Substance: VEMURAFENIB

REACTIONS (8)
  - Pain [None]
  - Drug intolerance [None]
  - Nausea [None]
  - Erythema [None]
  - Chills [None]
  - Swelling [None]
  - Mass [None]
  - Feeling abnormal [None]

NARRATIVE: CASE EVENT DATE: 20200813
